FAERS Safety Report 7013766-1 (Version None)
Quarter: 2010Q3

REPORT INFORMATION
  Report Type: 
  Country: None (occurrence: None)
  Receive Date: 20100924
  Receipt Date: 20100916
  Transmission Date: 20110219
  Serious: Yes (Other)
  Sender: FDA-Public Use
  Company Number: PHHY2010JP59137

PATIENT
  Age: 55 Year
  Sex: Male

DRUGS (2)
  1. GLEEVEC [Suspect]
     Indication: CHRONIC MYELOID LEUKAEMIA
     Dosage: 400 MG DAILY
     Route: 048
  2. GLEEVEC [Suspect]
     Dosage: 300 MG DAILY
     Route: 048

REACTIONS (5)
  - ACUTE PROMYELOCYTIC LEUKAEMIA [None]
  - DYSGEUSIA [None]
  - FACE OEDEMA [None]
  - MENTAL DISORDER [None]
  - PANCYTOPENIA [None]
